FAERS Safety Report 24076579 (Version 1)
Quarter: 2024Q3

REPORT INFORMATION
  Report Type: Report from Study
  Country: JP (occurrence: JP)
  Receive Date: 20240711
  Receipt Date: 20240711
  Transmission Date: 20241017
  Serious: Yes (Death, Other)
  Sender: ROCHE
  Company Number: JP-ROCHE-10000000393

PATIENT

DRUGS (2)
  1. MYCOPHENOLATE MOFETIL [Suspect]
     Active Substance: MYCOPHENOLATE MOFETIL
     Indication: Prophylaxis against graft versus host disease
     Dosage: DAYS 0 TO 27
     Route: 050
  2. CYCLOSPORINE [Concomitant]
     Active Substance: CYCLOSPORINE
     Dosage: FROM -1 DAY

REACTIONS (9)
  - Pneumonia [Fatal]
  - Mucosal inflammation [Unknown]
  - Vomiting [Unknown]
  - Malaise [Unknown]
  - Organ failure [Unknown]
  - Infection [Unknown]
  - Haemorrhage [Fatal]
  - Encephalitis [Unknown]
  - Sepsis [Fatal]
